FAERS Safety Report 8906649 (Version 4)
Quarter: 2013Q4

REPORT INFORMATION
  Report Type: Spontaneous
  Country: BR (occurrence: BR)
  Receive Date: 20121114
  Receipt Date: 20131219
  Transmission Date: 20140711
  Serious: Yes (Other)
  Sender: FDA-Public Use
  Company Number: BR-ELI_LILLY_AND_COMPANY-BR201211001960

PATIENT
  Sex: Female
  Weight: 70 kg

DRUGS (16)
  1. HUMULIN NPH [Suspect]
     Indication: TYPE 1 DIABETES MELLITUS
     Dosage: 60 IU, BID
     Route: 058
     Dates: start: 2006
  2. CLOPIDOGREL [Suspect]
     Indication: PRODUCT USED FOR UNKNOWN INDICATION
     Dosage: 75 MG, EACH MORNING
     Route: 065
  3. ALPHAGAN [Concomitant]
     Indication: GLAUCOMA
     Dosage: 0.1 %, BID
     Route: 065
  4. LOSARTAN [Concomitant]
     Indication: HYPERTENSION
     Dosage: 50 MG, EVERY 6 HRS
     Route: 065
  5. ATENOLOL [Concomitant]
     Indication: HYPERTENSION
     Dosage: 20 MG, EVERY 6 HRS
     Route: 065
  6. AMLODIPIN                          /00972401/ [Concomitant]
     Indication: HYPERTENSION
     Dosage: 5 MG, QD
     Route: 065
  7. MINILAX [Concomitant]
     Indication: CARDIOVASCULAR DISORDER
     Dosage: 20 MG, QD
     Route: 065
  8. INDAPAMID [Concomitant]
     Indication: PRODUCT USED FOR UNKNOWN INDICATION
     Dosage: 1.5 MG, QD
     Route: 065
  9. RANITIDINE [Concomitant]
     Indication: HYPOTHYROIDISM
     Dosage: 150 MG, QD
     Route: 065
  10. HYDROXYCHLOROQUINE SULFATE [Concomitant]
     Indication: FIBROMYALGIA
     Dosage: 400 MG, QD
     Route: 065
  11. OMEGA 3 [Concomitant]
     Indication: PRODUCT USED FOR UNKNOWN INDICATION
     Dosage: 1000 MG, BID
     Route: 065
  12. CALCIUM + VITAMIN D [Concomitant]
     Indication: PRODUCT USED FOR UNKNOWN INDICATION
     Dosage: 500 MG, QD
     Route: 065
  13. ESCITALOPRAM [Concomitant]
     Indication: DEPRESSION
     Dosage: 10 MG, QD
     Route: 065
  14. CLONAZEPAN [Concomitant]
     Indication: PRODUCT USED FOR UNKNOWN INDICATION
     Dosage: 2 MG, BID
     Route: 065
  15. SINVASTATINA [Concomitant]
     Indication: BLOOD TRIGLYCERIDES
     Dosage: 20 MG, QD
     Route: 065
  16. NOVOLIN [Concomitant]
     Indication: TYPE 1 DIABETES MELLITUS
     Dosage: UNK, UNKNOWN
     Route: 065

REACTIONS (18)
  - Device occlusion [Unknown]
  - Ischaemia [Unknown]
  - Brain hypoxia [Unknown]
  - Speech disorder [Unknown]
  - Fall [Unknown]
  - Visual acuity reduced [Unknown]
  - Hypoglycaemia [Unknown]
  - Sensory disturbance [Unknown]
  - Injection site mass [Not Recovered/Not Resolved]
  - Injection site pain [Not Recovered/Not Resolved]
  - Injection site pain [Not Recovered/Not Resolved]
  - Injection site haematoma [Unknown]
  - Injection site injury [Unknown]
  - Injection site haemorrhage [Unknown]
  - Pigmentation disorder [Unknown]
  - Hypertension [Unknown]
  - Injection site erythema [Not Recovered/Not Resolved]
  - Accidental overdose [Unknown]
